FAERS Safety Report 14000413 (Version 1)
Quarter: 2017Q3

REPORT INFORMATION
  Report Type: Spontaneous
  Country: US (occurrence: None)
  Receive Date: 20170922
  Receipt Date: 20170922
  Transmission Date: 20171128
  Serious: No
  Sender: FDA-Public Use
  Company Number: None

PATIENT
  Age: 75 Year
  Sex: Female

DRUGS (1)
  1. CAPECITABINE 500MG ACCORD [Suspect]
     Active Substance: CAPECITABINE
     Indication: BREAST CANCER FEMALE
     Dosage: 500MGX2=1000MG, BID FOR 7 DAYS ON AND 7 DAYS OFF
     Route: 048
     Dates: start: 20161106, end: 20170601

REACTIONS (3)
  - Visual impairment [None]
  - Colitis [None]
  - Alopecia [None]

NARRATIVE: CASE EVENT DATE: 20170601
